FAERS Safety Report 6829511-6 (Version None)
Quarter: 2010Q3

REPORT INFORMATION
  Report Type: 
  Country: None (occurrence: None)
  Receive Date: 20100709
  Receipt Date: 20070319
  Transmission Date: 20110219
  Serious: No
  Sender: FDA-Public Use
  Company Number: US-PFIZER INC-2007011112

PATIENT
  Sex: Male
  Weight: 79.38 kg

DRUGS (5)
  1. CHANTIX [Suspect]
     Indication: SMOKING CESSATION THERAPY
     Route: 048
     Dates: start: 20070101
  2. LITHIUM CARBONATE [Interacting]
  3. TYLENOL W/ CODEINE NO. 3 [Interacting]
     Indication: HEADACHE
     Dosage: DAILY
  4. ARTANE [Interacting]
  5. DRUG, UNSPECIFIED [Concomitant]

REACTIONS (2)
  - DRUG INTERACTION [None]
  - INHIBITORY DRUG INTERACTION [None]
